FAERS Safety Report 6856142-4 (Version None)
Quarter: 2010Q3

REPORT INFORMATION
  Report Type: 
  Country: None (occurrence: None)
  Receive Date: 20100715
  Receipt Date: 20100715
  Transmission Date: 20110219
  Serious: Yes (Death)
  Sender: FDA-Public Use
  Company Number: None

PATIENT
  Age: 3 Month
  Sex: Male
  Weight: 51.3 kg

DRUGS (2)
  1. CHLORPHENIRAMINE [Suspect]
  2. DEXTROMETHORPHAN [Suspect]

REACTIONS (4)
  - CHILLS [None]
  - LIVIDITY [None]
  - RESPIRATORY ARREST [None]
  - UNRESPONSIVE TO STIMULI [None]
